FAERS Safety Report 19653918 (Version 1)
Quarter: 2021Q3

REPORT INFORMATION
  Report Type: Spontaneous
  Country: JP (occurrence: JP)
  Receive Date: 20210803
  Receipt Date: 20210803
  Transmission Date: 20211014
  Serious: Yes (Other)
  Sender: FDA-Public Use
  Company Number: JP-009507513-2107JPN002543J

PATIENT
  Age: 7 Decade
  Sex: Male

DRUGS (2)
  1. TEMODAL [Suspect]
     Active Substance: TEMOZOLOMIDE
     Indication: MALIGNANT GLIOMA
     Dosage: 75 MILLIGRAM/SQ. METER, QD
     Route: 048
     Dates: start: 2020, end: 2020
  2. TEMODAL [Suspect]
     Active Substance: TEMOZOLOMIDE
     Dosage: 150 MILLIGRAM/SQ. METER, QD
     Route: 048
     Dates: start: 202006

REACTIONS (1)
  - Malignant neoplasm progression [Unknown]

NARRATIVE: CASE EVENT DATE: 202107
